FAERS Safety Report 10348878 (Version 1)
Quarter: 2014Q3

REPORT INFORMATION
  Report Type: Spontaneous
  Country: GB (occurrence: None)
  Receive Date: 20140725
  Receipt Date: 20140725
  Transmission Date: 20150326
  Serious: Yes (Hospitalization)
  Sender: FDA-Public Use
  Company Number: 2014-GB-009046

PATIENT
  Age: 40 Year
  Sex: Male

DRUGS (4)
  1. PIRENZEPINE (IPIRENZEPINE DIHYDROCHLORIDE) [Concomitant]
  2. SIMVASTATIN (SIMVASTATIN) [Concomitant]
     Active Substance: SIMVASTATIN
  3. CLOZAPINE (CLOZAPINE) TABLET [Suspect]
     Active Substance: CLOZAPINE
     Indication: SCHIZOPHRENIA, PARANOID TYPE
     Route: 048
  4. LAMOTRIGINE (LAMOTRIGINE) [Concomitant]
     Active Substance: LAMOTRIGINE

REACTIONS (5)
  - Respiratory arrest [None]
  - Pneumonia [None]
  - Coma [None]
  - Respiratory distress [None]
  - Ileus paralytic [None]
